FAERS Safety Report 7230890-9 (Version None)
Quarter: 2011Q1

REPORT INFORMATION
  Report Type: 
  Country: None (occurrence: None)
  Receive Date: 20110118
  Receipt Date: 20110110
  Transmission Date: 20110831
  Serious: Yes (Other)
  Sender: FDA-Public Use
  Company Number: CA-BRACCO-000250

PATIENT
  Sex: Female

DRUGS (4)
  1. ISOVUE-128 [Suspect]
     Indication: AORTIC ANEURYSM
     Route: 042
     Dates: start: 20100629, end: 20100629
  2. ISOVUE-128 [Suspect]
     Indication: ANGIOGRAM
     Route: 042
     Dates: start: 20100629, end: 20100629
  3. ISOVUE-128 [Suspect]
     Indication: FEMORAL ARTERY OCCLUSION
     Route: 042
     Dates: start: 20100629, end: 20100629
  4. LYRICA [Concomitant]

REACTIONS (1)
  - ANAPHYLACTIC REACTION [None]
